FAERS Safety Report 25680535 (Version 2)
Quarter: 2025Q3

REPORT INFORMATION
  Report Type: Report from Study
  Country: IL (occurrence: IL)
  Receive Date: 20250814
  Receipt Date: 20250915
  Transmission Date: 20251021
  Serious: Yes (Death, Other)
  Sender: PFIZER
  Company Number: IL-PFIZER INC-PV202500098129

PATIENT
  Age: 35 Month
  Sex: Male

DRUGS (2)
  1. TALZENNA [Suspect]
     Active Substance: TALAZOPARIB TOSYLATE
     Indication: Neuroblastoma
  2. IRINOTECAN HYDROCHLORIDE [Suspect]
     Active Substance: IRINOTECAN HYDROCHLORIDE
     Indication: Neuroblastoma

REACTIONS (4)
  - Death [Fatal]
  - Pancytopenia [Unknown]
  - Clostridium difficile infection [Unknown]
  - Diarrhoea [Unknown]
